FAERS Safety Report 7385353-7 (Version None)
Quarter: 2011Q1

REPORT INFORMATION
  Report Type: 
  Country: None (occurrence: None)
  Receive Date: 20110330
  Receipt Date: 20101025
  Transmission Date: 20110831
  Serious: No
  Sender: FDA-Public Use
  Company Number: US-MYLANLABS-2010S1018526

PATIENT
  Age: 50 Year
  Sex: Female

DRUGS (8)
  1. TYLENOL W/ CODEINE NO. 3 [Concomitant]
     Indication: ARTHRITIS
     Route: 048
  2. ZINC [Concomitant]
  3. EMSAM [Suspect]
     Indication: MAJOR DEPRESSION
     Route: 062
     Dates: start: 20081101
  4. DIAZEPAM [Concomitant]
     Route: 048
  5. EMSAM [Suspect]
     Indication: DEPRESSION
     Route: 062
     Dates: start: 20081101
  6. IBUPROFEN [Concomitant]
  7. OCEAN NASAL [Concomitant]
  8. ASCORBIC ACID [Concomitant]

REACTIONS (1)
  - PATHOGEN RESISTANCE [None]
